FAERS Safety Report 10523272 (Version 1)
Quarter: 2014Q4

REPORT INFORMATION
  Report Type: Spontaneous
  Country: DK (occurrence: DK)
  Receive Date: 20141016
  Receipt Date: 20141016
  Transmission Date: 20150528
  Serious: Yes (Life-Threatening)
  Sender: FDA-Public Use
  Company Number: DK-BAXTER-2014BAX060543

PATIENT
  Age: 55 Year
  Sex: Female

DRUGS (3)
  1. AZATHIOPRIN ACTAVIS [Suspect]
     Active Substance: AZATHIOPRINE
     Route: 048
  2. AZATHIOPRIN ACTAVIS [Suspect]
     Active Substance: AZATHIOPRINE
     Indication: POLYARTERITIS NODOSA
     Route: 048
     Dates: start: 2008, end: 20140919
  3. SENDOXAN TABLETS 50MG [Suspect]
     Active Substance: CYCLOPHOSPHAMIDE
     Indication: POLYARTERITIS NODOSA
     Route: 048
     Dates: start: 2004, end: 2007

REACTIONS (1)
  - Lung cancer metastatic [Not Recovered/Not Resolved]

NARRATIVE: CASE EVENT DATE: 20140815
